FAERS Safety Report 7011601 (Version 2)
Quarter: 2014Q3

REPORT INFORMATION
  Report Type: Spontaneous
  Country: US (occurrence: None)
  Receive Date: 20090526
  Receipt Date: 20140828
  Transmission Date: 20150326
  Serious: Yes (Hospitalization, Other)
  Sender: FDA-Public Use
  Company Number: 2009S1004118

PATIENT
  Age: 74 Year
  Sex: Female

DRUGS (8)
  1. CALCIUM [Concomitant]
     Active Substance: CALCIUM
  2. VICODIN (PARACETAMOL, HYDROCODONE BITARTRATE) [Concomitant]
  3. PHOSPHO-SODA [Suspect]
     Active Substance: SODIUM PHOSPHATE, DIBASIC\SODIUM PHOSPHATE, MONOBASIC
     Indication: PROCTOCOLECTOMY
     Dosage: PO
     Route: 048
     Dates: start: 20020102, end: 20020102
  4. CARDIZEM (DILTIAZEM) [Concomitant]
  5. PURINETHOL (MERCAPTOPURINE) [Concomitant]
  6. LIPITOR [Concomitant]
     Active Substance: ATORVASTATIN CALCIUM
  7. ACTONEL (RISEDRONATE SODIUM) [Concomitant]
  8. METHIMAZOLE (THIAMAZOLE) [Concomitant]

REACTIONS (15)
  - Ileus [None]
  - Lymphoid tissue hyperplasia [None]
  - Enterococcal infection [None]
  - Renal failure [None]
  - Renal failure chronic [None]
  - Enterococcal bacteraemia [None]
  - Renal failure acute [None]
  - Diarrhoea [None]
  - Hypophagia [None]
  - Metabolic acidosis [None]
  - Tachycardia [None]
  - Irritable bowel syndrome [None]
  - Haemoglobin decreased [None]
  - Dehydration [None]
  - Device related sepsis [None]

NARRATIVE: CASE EVENT DATE: 20031217
